FAERS Safety Report 11079293 (Version 5)
Quarter: 2015Q3

REPORT INFORMATION
  Report Type: Spontaneous
  Country: FI (occurrence: FI)
  Receive Date: 20150430
  Receipt Date: 20150729
  Transmission Date: 20151125
  Serious: Yes (Hospitalization, Disabling)
  Sender: FDA-Public Use
  Company Number: FI-JNJFOC-20150420876

PATIENT
  Sex: Female

DRUGS (18)
  1. PANADOL [Concomitant]
     Active Substance: ACETAMINOPHEN
     Dosage: 1-2 TIMES A DAY
     Route: 065
     Dates: start: 20140306
  2. COCILLANA-ETYFIN [Concomitant]
     Active Substance: ETHYLMORPHINE HYDROCHLORIDE\HERBALS
     Dosage: 2.5 - 5 ML X 1-3 TIMES PRN
     Route: 065
     Dates: start: 20120917
  3. SALAZOPYRIN [Concomitant]
     Active Substance: SULFASALAZINE
     Route: 065
     Dates: start: 20150417
  4. FOLIC ACID. [Concomitant]
     Active Substance: FOLIC ACID
     Route: 065
     Dates: start: 20140115
  5. TREXAN METHOTREXATE [Concomitant]
     Active Substance: METHOTREXATE SODIUM
     Route: 065
     Dates: start: 20140114
  6. ZOLT [Concomitant]
     Active Substance: LANSOPRAZOLE
     Route: 065
     Dates: start: 20140306
  7. ENBREL [Suspect]
     Active Substance: ETANERCEPT
     Indication: ANKYLOSING SPONDYLITIS
     Route: 058
     Dates: start: 20150209, end: 20150223
  8. CALCICHEW-D3 [Concomitant]
     Active Substance: CALCIUM\CHOLECALCIFEROL
     Route: 065
     Dates: start: 20061026
  9. ORLOC [Concomitant]
     Active Substance: BISOPROLOL FUMARATE
     Route: 065
     Dates: start: 20090206
  10. BRICANYL [Concomitant]
     Active Substance: TERBUTALINE SULFATE
     Dosage: 1-2 DOSES PRN
     Route: 065
     Dates: start: 20100523
  11. NALTREXONE [Concomitant]
     Active Substance: NALTREXONE
     Indication: ANKYLOSING SPONDYLITIS
     Route: 065
  12. MAREVAN [Concomitant]
     Active Substance: WARFARIN SODIUM
     Indication: ATRIAL FIBRILLATION
     Route: 065
     Dates: start: 20090409
  13. REMICADE [Suspect]
     Active Substance: INFLIXIMAB
     Indication: ANKYLOSING SPONDYLITIS
     Route: 042
     Dates: start: 2005, end: 20141210
  14. TAMBOCOR [Concomitant]
     Active Substance: FLECAINIDE ACETATE
     Route: 065
  15. TAMBOCOR [Concomitant]
     Active Substance: FLECAINIDE ACETATE
     Indication: ATRIAL FIBRILLATION
     Route: 065
     Dates: start: 20100601
  16. PULMICORT TURBUHALER [Concomitant]
     Active Substance: BUDESONIDE
     Route: 065
     Dates: start: 20100323
  17. PRED FORTE [Concomitant]
     Active Substance: PREDNISOLONE ACETATE
     Route: 065
     Dates: start: 20150112
  18. CALCIUM CARBONATE. [Concomitant]
     Active Substance: CALCIUM CARBONATE
     Route: 065

REACTIONS (5)
  - Myelitis [Not Recovered/Not Resolved]
  - Weight decreased [Unknown]
  - Iritis [Unknown]
  - Dilatation ventricular [Unknown]
  - Renal cyst [Unknown]

NARRATIVE: CASE EVENT DATE: 2014
